FAERS Safety Report 21336246 (Version 1)
Quarter: 2022Q3

REPORT INFORMATION
  Report Type: Spontaneous
  Country: DK (occurrence: DK)
  Receive Date: 20220915
  Receipt Date: 20220915
  Transmission Date: 20221026
  Serious: Yes (Life-Threatening)
  Sender: FDA-Public Use
  Company Number: None

PATIENT
  Age: 64 Year
  Sex: Male

DRUGS (1)
  1. ALTEPLASE [Suspect]
     Active Substance: ALTEPLASE
     Indication: Cerebrovascular accident
     Dosage: STRENGTH: UNKNOWN?FORM- POWDER AND SOLVENT FOR SOLUTION FOR INJECTION/INFUSION, SOLUTION FOR INJECTI
     Route: 042
     Dates: start: 20220902

REACTIONS (3)
  - Cerebral haemorrhage [Not Recovered/Not Resolved]
  - Muscular weakness [Unknown]
  - Diplopia [Unknown]

NARRATIVE: CASE EVENT DATE: 20220902
